FAERS Safety Report 19115267 (Version 1)
Quarter: 2021Q2

REPORT INFORMATION
  Report Type: Report from Study
  Country: US (occurrence: US)
  Receive Date: 20210409
  Receipt Date: 20210409
  Transmission Date: 20210717
  Serious: Yes (Hospitalization, Other)
  Sender: FDA-Public Use
  Company Number: US-TAKEDA-2018TUS034431

PATIENT
  Sex: Female

DRUGS (5)
  1. PONATINIB [Interacting]
     Active Substance: PONATINIB
     Dosage: 15 MILLIGRAM, QD
     Route: 048
  2. PONATINIB [Suspect]
     Active Substance: PONATINIB
     Indication: ACUTE LYMPHOCYTIC LEUKAEMIA RECURRENT
     Dosage: 30 MILLIGRAM, QD
     Route: 048
     Dates: start: 20181105
  3. VENCLEXTA [Concomitant]
     Active Substance: VENETOCLAX
     Dosage: UNK
     Route: 065
  4. VALTREX [Concomitant]
     Active Substance: VALACYCLOVIR HYDROCHLORIDE
     Dosage: 500 MILLIGRAM
     Route: 065
  5. SYNTHROID [Concomitant]
     Active Substance: LEVOTHYROXINE SODIUM
     Dosage: 88 MICROGRAM
     Route: 065

REACTIONS (7)
  - Hepatic enzyme abnormal [Unknown]
  - Rash [Unknown]
  - Pyrexia [Recovered/Resolved]
  - Infection [Unknown]
  - Drug interaction [Unknown]
  - Central nervous system leukaemia [Unknown]
  - Platelet count decreased [Unknown]
